FAERS Safety Report 25172027 (Version 1)
Quarter: 2025Q2

REPORT INFORMATION
  Report Type: Spontaneous
  Country: GB (occurrence: GB)
  Receive Date: 20250408
  Receipt Date: 20250408
  Transmission Date: 20250716
  Serious: Yes (Other)
  Sender: RANBAXY
  Company Number: GB-SUN PHARMACEUTICAL INDUSTRIES LTD-2025RR-502460

PATIENT
  Sex: Female

DRUGS (1)
  1. ESOMEPRAZOLE [Suspect]
     Active Substance: ESOMEPRAZOLE
     Indication: Product used for unknown indication
     Route: 065

REACTIONS (11)
  - Gastrooesophageal reflux disease [Unknown]
  - Oesophageal food impaction [Unknown]
  - Confusional state [Recovering/Resolving]
  - Breast pain [Unknown]
  - Nipple pain [Unknown]
  - Pain [Unknown]
  - Alopecia [Unknown]
  - Abdominal distension [Unknown]
  - Tenderness [Recovering/Resolving]
  - Headache [Unknown]
  - Fatigue [Unknown]
